FAERS Safety Report 15939561 (Version 4)
Quarter: 2019Q2

REPORT INFORMATION
  Report Type: Spontaneous
  Country: US (occurrence: US)
  Receive Date: 20190208
  Receipt Date: 20190624
  Transmission Date: 20190711
  Serious: Yes (Hospitalization, Other)
  Sender: FDA-Public Use
  Company Number: US-ASTRAZENECA-2018SF64547

PATIENT
  Age: 21301 Day
  Sex: Male
  Weight: 97.5 kg

DRUGS (25)
  1. METOPROLOL. [Concomitant]
     Active Substance: METOPROLOL
  2. LANTUS [Concomitant]
     Active Substance: INSULIN GLARGINE
  3. PRILOSEC [Suspect]
     Active Substance: OMEPRAZOLE MAGNESIUM
     Dosage: GENERIC
     Route: 065
     Dates: start: 2014, end: 2015
  4. LEVOFLOXACIN. [Concomitant]
     Active Substance: LEVOFLOXACIN
  5. PRILOSEC [Suspect]
     Active Substance: OMEPRAZOLE MAGNESIUM
     Dosage: GENERIC
     Route: 065
     Dates: start: 2014, end: 2015
  6. LISINOPRIL. [Concomitant]
     Active Substance: LISINOPRIL
  7. AZITHROMYCIN ANHYDROUS. [Concomitant]
     Active Substance: AZITHROMYCIN ANHYDROUS
  8. AMLODIPINE BESYLATE. [Concomitant]
     Active Substance: AMLODIPINE BESYLATE
  9. CLONIDINE HYDROCHLORIDE. [Concomitant]
     Active Substance: CLONIDINE HYDROCHLORIDE
  10. PRILOSEC [Suspect]
     Active Substance: OMEPRAZOLE MAGNESIUM
     Dosage: GENERIC-OMEPRAZOLE
     Route: 065
     Dates: start: 20140807
  11. LISINOPRIL. [Concomitant]
     Active Substance: LISINOPRIL
  12. CYCLOBENZAPRINE HYDROCHLORIDE. [Concomitant]
     Active Substance: CYCLOBENZAPRINE HYDROCHLORIDE
  13. VALSARTAN. [Concomitant]
     Active Substance: VALSARTAN
  14. HYDROCODONE [Concomitant]
     Active Substance: HYDROCODONE
  15. CALCITRIOL. [Concomitant]
     Active Substance: CALCITRIOL
  16. PREDNISONE. [Concomitant]
     Active Substance: PREDNISONE
  17. PRILOSEC [Suspect]
     Active Substance: OMEPRAZOLE MAGNESIUM
     Route: 048
     Dates: start: 2014, end: 2016
  18. MINOXIDIL. [Concomitant]
     Active Substance: MINOXIDIL
  19. CLINDAMYCIN. [Concomitant]
     Active Substance: CLINDAMYCIN
  20. FUROSEMIDE. [Concomitant]
     Active Substance: FUROSEMIDE
  21. NIFEDIPINE. [Concomitant]
     Active Substance: NIFEDIPINE
  22. AMLODIPINE [Concomitant]
     Active Substance: AMLODIPINE BESYLATE
  23. ACETAMINOPHEN. [Concomitant]
     Active Substance: ACETAMINOPHEN
  24. METOPROLOL TARTRATE. [Concomitant]
     Active Substance: METOPROLOL TARTRATE
  25. GABAPENTIN. [Concomitant]
     Active Substance: GABAPENTIN

REACTIONS (6)
  - Renal failure [Not Recovered/Not Resolved]
  - Chronic kidney disease [Not Recovered/Not Resolved]
  - Acute kidney injury [Not Recovered/Not Resolved]
  - End stage renal disease [Unknown]
  - Hyperparathyroidism secondary [Unknown]
  - Nephrogenic anaemia [Unknown]

NARRATIVE: CASE EVENT DATE: 20140930
